FAERS Safety Report 10125785 (Version 1)
Quarter: 2014Q2

REPORT INFORMATION
  Report Type: Spontaneous
  Country: FI (occurrence: FI)
  Receive Date: 20140425
  Receipt Date: 20140425
  Transmission Date: 20141212
  Serious: Yes (Hospitalization)
  Sender: FDA-Public Use
  Company Number: FI-WATSON-2014-07927

PATIENT
  Age: 63 Year
  Sex: Female

DRUGS (2)
  1. APOCYCLIN [Suspect]
     Indication: ROSACEA
     Dosage: 1000 MG, DAILY
     Route: 048
     Dates: start: 20140216, end: 20140223
  2. APOCYCLIN [Suspect]
     Dosage: 1000 MG, DAILY
     Route: 048
     Dates: start: 20130211, end: 20130225

REACTIONS (1)
  - Pancreas infection [Not Recovered/Not Resolved]
